FAERS Safety Report 8096155-0 (Version None)
Quarter: 2012Q1

REPORT INFORMATION
  Report Type: 
  Country: None (occurrence: None)
  Receive Date: 20120131
  Receipt Date: 20120119
  Transmission Date: 20120608
  Serious: Yes (Hospitalization)
  Sender: FDA-Public Use
  Company Number: FR-VIIV HEALTHCARE LIMITED-B0776327A

PATIENT
  Sex: Female

DRUGS (3)
  1. GLEEVEC [Suspect]
     Indication: GASTROINTESTINAL STROMAL TUMOUR
     Dosage: 400MG PER DAY
     Route: 048
     Dates: start: 20111122, end: 20111221
  2. ISENTRESS [Suspect]
     Indication: HIV INFECTION
     Dosage: 400MG TWICE PER DAY
     Route: 048
     Dates: start: 20111125, end: 20111221
  3. ABACAVIR SULFATE [Suspect]
     Indication: HIV INFECTION
     Dosage: 1UNIT PER DAY
     Route: 048
     Dates: start: 20111118, end: 20111221

REACTIONS (6)
  - NEUTROPENIA [None]
  - DERMATITIS EXFOLIATIVE [None]
  - HEPATOCELLULAR INJURY [None]
  - PYREXIA [None]
  - EOSINOPHILIA [None]
  - CHOLESTASIS [None]
